FAERS Safety Report 4962100-7 (Version None)
Quarter: 2006Q1

REPORT INFORMATION
  Report Type: 
  Country: None (occurrence: None)
  Receive Date: 20060329
  Receipt Date: 20060317
  Transmission Date: 20060701
  Serious: Yes (Hospitalization)
  Sender: FDA-Public Use
  Company Number: 2006037493

PATIENT
  Age: 11 Month
  Sex: Female

DRUGS (1)
  1. UNISOM [Suspect]
     Indication: ACCIDENTAL EXPOSURE
     Dosage: ONCE, ORAL
     Route: 048
     Dates: start: 20060316, end: 20060316

REACTIONS (2)
  - ACCIDENTAL DRUG INTAKE BY CHILD [None]
  - CONVULSION [None]
